FAERS Safety Report 19245556 (Version 2)
Quarter: 2021Q2

REPORT INFORMATION
  Report Type: Spontaneous
  Country: AU (occurrence: AU)
  Receive Date: 20210512
  Receipt Date: 20210611
  Transmission Date: 20210717
  Serious: Yes (Other)
  Sender: FDA-Public Use
  Company Number: AU-BRISTOL-MYERS SQUIBB COMPANY-BMS-2021-044265

PATIENT
  Age: 49 Year
  Sex: Female
  Weight: 87 kg

DRUGS (8)
  1. METHOTREXATE [METHOTREXATE SODIUM] [Concomitant]
     Active Substance: METHOTREXATE SODIUM
     Indication: PRODUCT USED FOR UNKNOWN INDICATION
     Dosage: 0.3 MILLILITER, QWK?50MG/2ML INJECTION
     Route: 065
  2. NAPROSYN [Concomitant]
     Active Substance: NAPROXEN
     Indication: PRODUCT USED FOR UNKNOWN INDICATION
     Dosage: NAPROSYN SR 1000 TABLET, MODIFIED RELEASE, 1 TABLET DAILY AS DIRECTED
     Route: 065
  3. FOLIC ACID. [Concomitant]
     Active Substance: FOLIC ACID
     Indication: PRODUCT USED FOR UNKNOWN INDICATION
     Dosage: 5 MILLIGRAM, QWK
     Route: 065
  4. PROXEN [KETOPROFEN] [Concomitant]
     Active Substance: KETOPROFEN
     Indication: ADVERSE EVENT
     Dosage: 1000 MG EVERY NOW AND THEN IF SORE ANYWHERE BUT NOT EVERYDAY
     Route: 065
  5. AMITRIPTYLINE [Concomitant]
     Active Substance: AMITRIPTYLINE
     Indication: PRODUCT USED FOR UNKNOWN INDICATION
     Dosage: 2 TABLETS BEFORE BED
     Route: 065
  6. TRAMADOL. [Concomitant]
     Active Substance: TRAMADOL
     Indication: PRODUCT USED FOR UNKNOWN INDICATION
     Dosage: 100 MILLIGRAM, BID (1 TABLET TWICE A DAY, AS NEEDED, MODIFIED RELEASE)
     Route: 065
  7. ORENCIA [Suspect]
     Active Substance: ABATACEPT
     Indication: RHEUMATOID ARTHRITIS
     Dosage: 125 MG/ML PEN DEVICE, ONCE A WEEK, ONE PEN EVERY FRIDAY TO HER BELLY
     Route: 065
  8. RABEPRAZOLE [RABEPRAZOLE SODIUM] [Concomitant]
     Active Substance: RABEPRAZOLE SODIUM
     Indication: PRODUCT USED FOR UNKNOWN INDICATION
     Dosage: 2 TABLETS DAILY
     Route: 065

REACTIONS (5)
  - Haemorrhage [Unknown]
  - Product container seal issue [Unknown]
  - Pain [Unknown]
  - Malaise [Unknown]
  - Contusion [Unknown]
